FAERS Safety Report 4525896-4 (Version None)
Quarter: 2004Q4

REPORT INFORMATION
  Report Type: 
  Country: None (occurrence: None)
  Receive Date: 20041213
  Receipt Date: 20041206
  Transmission Date: 20050328
  Serious: Yes (Hospitalization, Other)
  Sender: FDA-Public Use
  Company Number: PHBS2004HK16428

PATIENT
  Age: 51 Year
  Sex: Male

DRUGS (7)
  1. IRRADIATION [Concomitant]
  2. METHOTREXATE [Concomitant]
  3. IMURAN [Concomitant]
  4. STEROIDS NOS [Concomitant]
  5. BUSULFAN [Concomitant]
  6. CYCLOPHOSPHAMIDE [Concomitant]
  7. CYCLOSPORINE [Suspect]

REACTIONS (5)
  - ASEPTIC NECROSIS BONE [None]
  - GRAFT VERSUS HOST DISEASE [None]
  - SURGERY [None]
  - TONGUE NEOPLASM [None]
  - TUBERCULOSIS [None]
